FAERS Safety Report 15085600 (Version 1)
Quarter: 2018Q2

REPORT INFORMATION
  Report Type: Report from Study
  Country: US (occurrence: US)
  Receive Date: 20180628
  Receipt Date: 20180628
  Transmission Date: 20180711
  Serious: No
  Sender: FDA-Public Use
  Company Number: US-AMGEN-USASL2017061060

PATIENT
  Age: 80 Year
  Sex: Female

DRUGS (13)
  1. PROLIA [Suspect]
     Active Substance: DENOSUMAB
     Indication: OSTEOPOROSIS POSTMENOPAUSAL
     Dosage: 60 MG, Q6MO
     Route: 058
  2. METHOTREXATE. [Concomitant]
     Active Substance: METHOTREXATE
     Indication: POLYMYALGIA RHEUMATICA
  3. LISINOPRIL. [Concomitant]
     Active Substance: LISINOPRIL
     Indication: HYPERTENSION
     Dosage: 40 MG, BID
     Route: 048
  4. EPIPEN [Concomitant]
     Active Substance: EPINEPHRINE
     Dosage: 0.3 MG, UNK
     Route: 030
  5. VITAMIN B12 [Concomitant]
     Active Substance: CYANOCOBALAMIN
     Dosage: 1000 MUG, QD
  6. PROLIA [Suspect]
     Active Substance: DENOSUMAB
     Indication: VITAMIN D DEFICIENCY
  7. ASPIRIN. [Concomitant]
     Active Substance: ASPIRIN
     Dosage: 81 MG, QD
     Route: 048
  8. FOLIC ACID. [Concomitant]
     Active Substance: FOLIC ACID
     Indication: TEMPORAL ARTERITIS
     Dosage: 1 MG, QD
     Route: 048
  9. PREDNISONE. [Concomitant]
     Active Substance: PREDNISONE
     Dosage: 4 MG, QD
     Dates: start: 20120515
  10. CALCIUM+VIT D [Concomitant]
     Dosage: UNK
     Route: 048
  11. METHOTREXATE. [Concomitant]
     Active Substance: METHOTREXATE
     Indication: TEMPORAL ARTERITIS
     Dosage: 2.5 MG, 4 TIMES/WK
     Dates: start: 2011
  12. FOLIC ACID. [Concomitant]
     Active Substance: FOLIC ACID
     Indication: POLYMYALGIA RHEUMATICA
  13. METOPROLOL TARTRATE. [Concomitant]
     Active Substance: METOPROLOL TARTRATE
     Indication: HYPERTENSION
     Dosage: 100 MG, BID

REACTIONS (1)
  - Off label use [Unknown]
